FAERS Safety Report 11838914 (Version 1)
Quarter: 2015Q4

REPORT INFORMATION
  Report Type: Report from Study
  Country: NZ (occurrence: NZ)
  Receive Date: 20151216
  Receipt Date: 20151216
  Transmission Date: 20160305
  Serious: Yes (Death)
  Sender: FDA-Public Use
  Company Number: NZ-UCBSA-2015039784

PATIENT
  Age: 80 Year
  Sex: Male

DRUGS (3)
  1. FENTANYL. [Concomitant]
     Active Substance: FENTANYL
     Indication: PAIN
     Dosage: 25 ?G, ONCE DAILY (QD)
     Route: 062
     Dates: end: 20140202
  2. SINEMET [Concomitant]
     Active Substance: CARBIDOPA\LEVODOPA
     Indication: PARKINSON^S DISEASE
     Dosage: 125 MG, 5X/DAY
  3. ROTIGOTINE PD [Suspect]
     Active Substance: ROTIGOTINE
     Indication: PARKINSON^S DISEASE
     Dosage: 16 MG, ONCE DAILY (QD)
     Route: 062

REACTIONS (2)
  - Cardiac failure congestive [Fatal]
  - Thoracic vertebral fracture [Unknown]

NARRATIVE: CASE EVENT DATE: 2010
